FAERS Safety Report 26053574 (Version 1)
Quarter: 2025Q4

REPORT INFORMATION
  Report Type: Spontaneous
  Country: US (occurrence: None)
  Receive Date: 20251116
  Receipt Date: 20251116
  Transmission Date: 20260119
  Serious: No
  Sender: FDA-CTU
  Company Number: None

PATIENT
  Age: 36 Year
  Sex: Female

DRUGS (5)
  1. ZAVZPRET [Suspect]
     Active Substance: ZAVEGEPANT HYDROCHLORIDE
     Indication: Migraine
     Dosage: 1 SPRAY AS NEEDED RESPIRATHORY (INHLATION)
     Route: 055
     Dates: start: 20251113, end: 20251113
  2. SPIRONOLACTONE [Concomitant]
     Active Substance: SPIRONOLACTONE
  3. PROGESTERONE [Concomitant]
     Active Substance: PROGESTERONE
  4. NEBIVOLOL [Concomitant]
     Active Substance: NEBIVOLOL
  5. DESLORATADINE [Concomitant]
     Active Substance: DESLORATADINE

REACTIONS (8)
  - Nausea [None]
  - Migraine [None]
  - Hypophagia [None]
  - Mental impairment [None]
  - Heart rate increased [None]
  - Nasal congestion [None]
  - Ear congestion [None]
  - Cognitive disorder [None]

NARRATIVE: CASE EVENT DATE: 20251113
